FAERS Safety Report 13344797 (Version 2)
Quarter: 2017Q2

REPORT INFORMATION
  Report Type: Spontaneous
  Country: US (occurrence: US)
  Receive Date: 20170317
  Receipt Date: 20170421
  Transmission Date: 20170830
  Serious: Yes (Hospitalization)
  Sender: FDA-Public Use
  Company Number: PHEH2017US007333

PATIENT
  Age: 59 Year
  Sex: Female
  Weight: 63.5 kg

DRUGS (2)
  1. NEORAL [Suspect]
     Active Substance: CYCLOSPORINE
     Indication: RENAL TRANSPLANT
     Dosage: 25 MG, BID (TWICE A DAY)
     Route: 065
     Dates: start: 200606
  2. RAPAMUNE [Suspect]
     Active Substance: SIROLIMUS
     Indication: RENAL TRANSPLANT
     Dosage: 1 MG, QD (5 TABLETS) (1 IN THE MORNING 2 AT NOON AND 3 AT AFTERNOON)
     Route: 065
     Dates: start: 200606

REACTIONS (2)
  - Cerebrovascular accident [Not Recovered/Not Resolved]
  - Hemiplegia [Not Recovered/Not Resolved]

NARRATIVE: CASE EVENT DATE: 201611
